FAERS Safety Report 7445480-2 (Version None)
Quarter: 2011Q2

REPORT INFORMATION
  Report Type: 
  Country: None (occurrence: None)
  Receive Date: 20110429
  Receipt Date: 20110417
  Transmission Date: 20111010
  Serious: No
  Sender: FDA-Public Use
  Company Number: US-B.I. PHARMACEUTICALS,INC./RIDGEFIELD-2011-BP-11034BP

PATIENT
  Age: 38 Year
  Sex: Male

DRUGS (1)
  1. COMBIVENT [Suspect]
     Indication: ASTHMA
     Route: 055

REACTIONS (1)
  - AMPHETAMINES POSITIVE [None]
